FAERS Safety Report 14325340 (Version 1)
Quarter: 2017Q4

REPORT INFORMATION
  Report Type: Spontaneous
  Country: GB (occurrence: GB)
  Receive Date: 20171226
  Receipt Date: 20171226
  Transmission Date: 20180321
  Serious: Yes (Other)
  Sender: FDA-Public Use
  Company Number: GB-LANNETT COMPANY, INC.-GB-2017LAN001267

PATIENT
  Age: 45 Year
  Sex: Male

DRUGS (1)
  1. DIPHENOXYLATE HCL; ATROPINE SULFATE [Suspect]
     Active Substance: ATROPINE SULFATE\DIPHENOXYLATE HYDROCHLORIDE
     Indication: CATARACT CONGENITAL
     Dosage: 1% OINTMENT ONCE EVERY 5 DAYS
     Route: 061

REACTIONS (2)
  - Ocular hypertension [Unknown]
  - Pigment dispersion syndrome [Unknown]
